FAERS Safety Report 7934439-4 (Version None)
Quarter: 2011Q4

REPORT INFORMATION
  Report Type: 
  Country: None (occurrence: None)
  Receive Date: 20111122
  Receipt Date: 20111114
  Transmission Date: 20120403
  Serious: Yes (Congenital Anomaly)
  Sender: FDA-Public Use
  Company Number: US-GLAXOSMITHKLINE-A0953952A

PATIENT
  Sex: Male

DRUGS (1)
  1. PAXIL [Suspect]
     Indication: DEPRESSION
     Route: 064
     Dates: start: 20000601, end: 20010917

REACTIONS (3)
  - AMBLYOPIA CONGENITAL [None]
  - FOETAL EXPOSURE DURING PREGNANCY [None]
  - SYNDACTYLY [None]
